FAERS Safety Report 10379599 (Version 2)
Quarter: 2014Q3

REPORT INFORMATION
  Report Type: Spontaneous
  Country: JP (occurrence: JP)
  Receive Date: 20140812
  Receipt Date: 20140908
  Transmission Date: 20150326
  Serious: Yes (Other)
  Sender: FDA-Public Use
  Company Number: PHHY2014JP099280

PATIENT
  Age: 17 Year
  Sex: Male

DRUGS (3)
  1. BREDININ [Concomitant]
     Active Substance: MIZORIBINE
     Dosage: UNK
  2. PREDONINE [Concomitant]
     Active Substance: PREDNISOLONE\PREDNISOLONE ACETATE\PREDNISOLONE SODIUM SUCCINATE
     Dosage: UNK
  3. NEORAL [Suspect]
     Active Substance: CYCLOSPORINE
     Indication: NEPHROTIC SYNDROME
     Dosage: 170 MG, DAILY (DIVIDED TWICE A DAY)
     Route: 048

REACTIONS (1)
  - Meniscus injury [Recovered/Resolved]
